FAERS Safety Report 6448901-7 (Version None)
Quarter: 2009Q4

REPORT INFORMATION
  Report Type: 
  Country: None (occurrence: None)
  Receive Date: 20091120
  Receipt Date: 20091116
  Transmission Date: 20100525
  Serious: Yes (Hospitalization)
  Sender: FDA-Public Use
  Company Number: CA-JNJFOC-20091001842

PATIENT
  Sex: Male
  Weight: 90.3 kg

DRUGS (47)
  1. GOLIMUMAB [Suspect]
     Route: 058
     Dates: start: 20060718
  2. GOLIMUMAB [Suspect]
     Route: 058
     Dates: start: 20060718
  3. GOLIMUMAB [Suspect]
     Route: 058
     Dates: start: 20060718
  4. GOLIMUMAB [Suspect]
     Route: 058
     Dates: start: 20060718
  5. GOLIMUMAB [Suspect]
     Route: 058
     Dates: start: 20060718
  6. GOLIMUMAB [Suspect]
     Route: 058
     Dates: start: 20060718
  7. GOLIMUMAB [Suspect]
     Route: 058
     Dates: start: 20060718
  8. GOLIMUMAB [Suspect]
     Route: 058
     Dates: start: 20060718
  9. GOLIMUMAB [Suspect]
     Route: 058
     Dates: start: 20060718
  10. GOLIMUMAB [Suspect]
     Route: 058
     Dates: start: 20060718
  11. GOLIMUMAB [Suspect]
     Route: 058
     Dates: start: 20060718
  12. GOLIMUMAB [Suspect]
     Route: 058
     Dates: start: 20060718
  13. GOLIMUMAB [Suspect]
     Route: 058
     Dates: start: 20060718
  14. GOLIMUMAB [Suspect]
     Route: 058
     Dates: start: 20060718
  15. GOLIMUMAB [Suspect]
     Route: 058
     Dates: start: 20060718
  16. GOLIMUMAB [Suspect]
     Route: 058
     Dates: start: 20060718
  17. GOLIMUMAB [Suspect]
     Route: 058
     Dates: start: 20060718
  18. GOLIMUMAB [Suspect]
     Route: 058
     Dates: start: 20060718
  19. GOLIMUMAB [Suspect]
     Route: 058
     Dates: start: 20060718
  20. GOLIMUMAB [Suspect]
     Route: 058
     Dates: start: 20060718
  21. GOLIMUMAB [Suspect]
     Route: 058
     Dates: start: 20060718
  22. GOLIMUMAB [Suspect]
     Route: 058
     Dates: start: 20060718
  23. GOLIMUMAB [Suspect]
     Route: 058
     Dates: start: 20060718
  24. GOLIMUMAB [Suspect]
     Route: 058
     Dates: start: 20060718
  25. GOLIMUMAB [Suspect]
     Route: 058
     Dates: start: 20060718
  26. GOLIMUMAB [Suspect]
     Route: 058
     Dates: start: 20060718
  27. GOLIMUMAB [Suspect]
     Route: 058
     Dates: start: 20060718
  28. GOLIMUMAB [Suspect]
     Route: 058
     Dates: start: 20060718
  29. GOLIMUMAB [Suspect]
     Route: 058
     Dates: start: 20060718
  30. GOLIMUMAB [Suspect]
     Route: 058
     Dates: start: 20060718
  31. GOLIMUMAB [Suspect]
     Route: 058
     Dates: start: 20060718
  32. GOLIMUMAB [Suspect]
     Route: 058
     Dates: start: 20060718
  33. GOLIMUMAB [Suspect]
     Route: 058
     Dates: start: 20060718
  34. GOLIMUMAB [Suspect]
     Route: 058
     Dates: start: 20060718
  35. GOLIMUMAB [Suspect]
     Route: 058
     Dates: start: 20060718
  36. GOLIMUMAB [Suspect]
     Route: 058
     Dates: start: 20060718
  37. GOLIMUMAB [Suspect]
     Route: 058
     Dates: start: 20060718
  38. GOLIMUMAB [Suspect]
     Route: 058
     Dates: start: 20060718
  39. GOLIMUMAB [Suspect]
     Route: 058
     Dates: start: 20060718
  40. GOLIMUMAB [Suspect]
     Route: 058
     Dates: start: 20060718
  41. GOLIMUMAB [Suspect]
     Route: 058
     Dates: start: 20060718
  42. GOLIMUMAB [Suspect]
     Indication: RHEUMATOID ARTHRITIS
     Route: 058
     Dates: start: 20060718
  43. METHOTREXATE [Concomitant]
     Route: 048
  44. LEUCOVORIN CALCIUM [Concomitant]
     Route: 048
  45. METRONIDAZOLE [Concomitant]
     Route: 061
  46. CELEBREX [Concomitant]
     Route: 048
  47. PREDNISONE [Concomitant]
     Route: 048

REACTIONS (1)
  - HISTOPLASMOSIS DISSEMINATED [None]
